FAERS Safety Report 15812854 (Version 1)
Quarter: 2019Q1

REPORT INFORMATION
  Report Type: Spontaneous
  Country: US (occurrence: US)
  Receive Date: 20190111
  Receipt Date: 20190111
  Transmission Date: 20190417
  Serious: Yes (Death)
  Sender: FDA-Public Use
  Company Number: None

PATIENT
  Age: 22 Year
  Sex: Male

DRUGS (3)
  1. KRATOM [Suspect]
     Active Substance: HERBALS\MITRAGYNINE
  2. MORPHINE [Suspect]
     Active Substance: MORPHINE
  3. ETIZOLAM [Concomitant]
     Active Substance: ETIZOLAM

REACTIONS (3)
  - Respiratory depression [None]
  - Overdose [None]
  - Accidental death [None]

NARRATIVE: CASE EVENT DATE: 20171123
